FAERS Safety Report 12837110 (Version 1)
Quarter: 2016Q4

REPORT INFORMATION
  Report Type: Spontaneous
  Country: US (occurrence: US)
  Receive Date: 20161007
  Receipt Date: 20161007
  Transmission Date: 20170207
  Serious: Yes (Hospitalization, Other)
  Sender: FDA-Public Use
  Company Number: None

PATIENT
  Age: 11 Month
  Sex: Female
  Weight: 15.75 kg

DRUGS (2)
  1. KIDS NORDIC BERRY VITAMINS [Concomitant]
  2. BABY TEETHING (HYLAND HOMEOPATHIC) [Suspect]
     Active Substance: HOMEOPATHICS
     Indication: TEETHING
     Dosage: ?          QUANTITY:1 TABLET(S);?
     Route: 048
     Dates: start: 20150822, end: 20150822

REACTIONS (3)
  - Unresponsive to stimuli [None]
  - Pyrexia [None]
  - Petit mal epilepsy [None]

NARRATIVE: CASE EVENT DATE: 20150822
